FAERS Safety Report 9664702 (Version 3)
Quarter: 2014Q1

REPORT INFORMATION
  Report Type: Spontaneous
  Country: JP (occurrence: JP)
  Receive Date: 20131101
  Receipt Date: 20140129
  Transmission Date: 20141002
  Serious: Yes (Hospitalization)
  Sender: FDA-Public Use
  Company Number: JP-ABBVIE-13P-087-1165119-00

PATIENT
  Age: 4 Year
  Sex: Female
  Weight: 15.3 kg

DRUGS (6)
  1. CLARITHROMYCIN [Suspect]
     Indication: UPPER RESPIRATORY TRACT INFECTION
     Dosage: 3G; DRY SYRUP
     Route: 048
     Dates: start: 20131008, end: 20131009
  2. ANTIBIOTICS-RESISTANT LACTIC ACID BACTERIAE [Concomitant]
     Indication: PRODUCT USED FOR UNKNOWN INDICATION
     Route: 048
     Dates: start: 20131008, end: 20131009
  3. TELGIN G MARUHO [Concomitant]
     Indication: RESPIRATORY DISORDER
     Route: 048
     Dates: start: 20131008, end: 20131009
  4. ASVERIN [Concomitant]
     Indication: RESPIRATORY DISORDER
     Route: 048
     Dates: start: 20131008, end: 20131009
  5. PULSMARIN A [Concomitant]
     Indication: RESPIRATORY DISORDER
     Route: 048
     Dates: start: 20131008, end: 20131009
  6. ESTERTIN [Concomitant]
     Indication: RESPIRATORY DISORDER
     Route: 048
     Dates: start: 20131008, end: 20131009

REACTIONS (1)
  - Erythema multiforme [Recovering/Resolving]
